FAERS Safety Report 12466487 (Version 1)
Quarter: 2016Q2

REPORT INFORMATION
  Report Type: Spontaneous
  Country: US (occurrence: US)
  Receive Date: 20160615
  Receipt Date: 20160615
  Transmission Date: 20160815
  Serious: No
  Sender: FDA-Public Use
  Company Number: US-BIOGEN-2016BI00247471

PATIENT
  Sex: Female

DRUGS (1)
  1. TECFIDERA [Suspect]
     Active Substance: DIMETHYL FUMARATE
     Indication: MULTIPLE SCLEROSIS
     Dosage: TOOK 2 SAMPLE DOSES 1 ONE DAY AND OTHER NEXT DAY.
     Route: 065

REACTIONS (2)
  - Erythema [Recovered/Resolved]
  - Heart rate increased [Recovered/Resolved]
